FAERS Safety Report 5367740-1 (Version None)
Quarter: 2007Q2

REPORT INFORMATION
  Report Type: 
  Country: None (occurrence: None)
  Receive Date: 20070622
  Receipt Date: 20070416
  Transmission Date: 20071010
  Serious: No
  Sender: FDA-Public Use
  Company Number: US-ASTRAZENECA-2007UW07383

PATIENT
  Age: 72 Year
  Sex: Male
  Weight: 74.4 kg

DRUGS (7)
  1. PULMICORT RESPULES [Suspect]
     Indication: EMPHYSEMA
     Dosage: 0.5 MG/2 ML
     Route: 055
     Dates: start: 20070412, end: 20070413
  2. PULMICORT RESPULES [Suspect]
     Indication: CHRONIC OBSTRUCTIVE PULMONARY DISEASE
     Dosage: 0.5 MG/2 ML
     Route: 055
     Dates: start: 20070412, end: 20070413
  3. PREDNISONE TAB [Concomitant]
     Route: 048
  4. ALBUTEROL [Concomitant]
     Route: 055
  5. ALBUTEROL [Concomitant]
  6. SPIRIVA [Concomitant]
  7. FORADIL [Concomitant]

REACTIONS (1)
  - DYSPNOEA [None]
